FAERS Safety Report 7550807-7 (Version None)
Quarter: 2011Q2

REPORT INFORMATION
  Report Type: 
  Country: None (occurrence: None)
  Receive Date: 20110616
  Receipt Date: 20110607
  Transmission Date: 20111010
  Serious: Yes (Other)
  Sender: FDA-Public Use
  Company Number: JP-JNJFOC-20110602341

PATIENT
  Age: 68 Year
  Sex: Female

DRUGS (3)
  1. ZYPREXA [Suspect]
     Indication: SCHIZOPHRENIA
     Route: 048
     Dates: end: 20110427
  2. PIPAMPERONE HYDROCHLORIDE [Suspect]
     Indication: SCHIZOPHRENIA
     Route: 048
  3. GALANTAMINE HYDROBROMIDE [Suspect]
     Indication: DEMENTIA
     Route: 048
     Dates: start: 20110413, end: 20110427

REACTIONS (3)
  - DIZZINESS [None]
  - DYSARTHRIA [None]
  - FALL [None]
